FAERS Safety Report 6203277-5 (Version None)
Quarter: 2009Q2

REPORT INFORMATION
  Report Type: 
  Country: None (occurrence: None)
  Receive Date: 20090521
  Receipt Date: 20090512
  Transmission Date: 20091009
  Serious: Yes (Death)
  Sender: FDA-Public Use
  Company Number: GXKR2009AT05752

PATIENT
  Age: 50 Year
  Sex: Female

DRUGS (7)
  1. BLEOMYCIN SULFATE [Suspect]
     Indication: HODGKIN'S DISEASE
  2. DOXORUBICIN HCL [Suspect]
     Indication: HODGKIN'S DISEASE
  3. ETOPOSIDE [Suspect]
     Indication: HODGKIN'S DISEASE
  4. VINCRISTINE [Suspect]
     Indication: HODGKIN'S DISEASE
  5. PREDNISONE [Suspect]
     Indication: HODGKIN'S DISEASE
  6. CYCLOPHOSPHAMIDE [Suspect]
     Indication: HODGKIN'S DISEASE
  7. PROCARBAZINE (PROCARBAZINE) [Suspect]
     Indication: HODGKIN'S DISEASE

REACTIONS (1)
  - BACTERIAL INFECTION [None]
